FAERS Safety Report 24054553 (Version 1)
Quarter: 2024Q3

REPORT INFORMATION
  Report Type: Spontaneous
  Country: JP (occurrence: JP)
  Receive Date: 20240705
  Receipt Date: 20240705
  Transmission Date: 20241016
  Serious: Yes (Life-Threatening)
  Sender: PFIZER
  Company Number: JP-PFIZER INC-PV202400086445

PATIENT
  Age: 56 Year
  Sex: Female

DRUGS (1)
  1. SUNITINIB MALATE [Suspect]
     Active Substance: SUNITINIB MALATE
     Indication: Gastrointestinal stromal tumour
     Dosage: 50 MG, CYCLIC (4 WEEKS DOSING, 2 WEEKS TEMPORARILY DISCONTINUED)

REACTIONS (2)
  - Platelet count decreased [Unknown]
  - Malaise [Unknown]
